FAERS Safety Report 6738906-0 (Version None)
Quarter: 2010Q2

REPORT INFORMATION
  Report Type: 
  Country: None (occurrence: None)
  Receive Date: 20100521
  Receipt Date: 20100507
  Transmission Date: 20101027
  Serious: Yes (Hospitalization)
  Sender: FDA-Public Use
  Company Number: 003575

PATIENT
  Sex: Female

DRUGS (15)
  1. CERTOLIZUMAB PEGOL (CERTOLIZUMAB PEGOL) [Suspect]
     Indication: RHEUMATOID ARTHRITIS
     Dosage: (SUBCUTANEOUS)
     Route: 058
     Dates: start: 20091013, end: 20091208
  2. METHOTREXATE [Suspect]
     Indication: RHEUMATOID ARTHRITIS
     Dosage: (8 MG 1X/WEEK ORAL)
     Route: 048
     Dates: start: 20100105, end: 20100223
  3. PREDNISOLONE [Suspect]
     Indication: INTERSTITIAL LUNG DISEASE
     Dosage: (21 MG ORAL)
     Route: 048
     Dates: start: 20100419
  4. TACROLIMUS [Suspect]
     Indication: RHEUMATOID ARTHRITIS
     Dosage: (2 MG ORAL)
     Route: 048
     Dates: start: 20100408
  5. REBAMIPIDE [Concomitant]
  6. PREDNISOLONE [Concomitant]
  7. ETODOLAC [Concomitant]
  8. ALENDRONATE SODIUM [Concomitant]
  9. METHOTREXATE [Concomitant]
  10. FOLIC ACID [Concomitant]
  11. RABEPRAZOLE SODIUM [Concomitant]
  12. ISONIAZID [Concomitant]
  13. PYRIDOXAL PHOSPHATE [Concomitant]
  14. NIFEDIPINE [Concomitant]
  15. MAGNESIUM OXIDE [Concomitant]

REACTIONS (18)
  - ACUTE MYOCARDIAL INFARCTION [None]
  - ARTERIOSPASM CORONARY [None]
  - ASPERGILLUS TEST [None]
  - BACK PAIN [None]
  - CHLAMYDIA TEST POSITIVE [None]
  - CONDITION AGGRAVATED [None]
  - DIABETES MELLITUS [None]
  - DIARRHOEA [None]
  - DRUG INEFFECTIVE [None]
  - HAEMORRHOIDS [None]
  - HAMARTOMA [None]
  - INTERSTITIAL LUNG DISEASE [None]
  - LEIOMYOMA [None]
  - MYCOPLASMA TEST POSITIVE [None]
  - NEURILEMMOMA [None]
  - ORAL CANDIDIASIS [None]
  - PNEUMONIA PNEUMOCOCCAL [None]
  - RHEUMATOID ARTHRITIS [None]
